FAERS Safety Report 9552008 (Version 4)
Quarter: 2014Q3

REPORT INFORMATION
  Report Type: Report from Study
  Country: US (occurrence: US)
  Receive Date: 20130925
  Receipt Date: 20140821
  Transmission Date: 20150326
  Serious: Yes (Other)
  Sender: FDA-Public Use
  Company Number: US-JNJFOC-20130910196

PATIENT
  Age: 43 Year
  Sex: Female

DRUGS (1)
  1. STELARA [Suspect]
     Active Substance: USTEKINUMAB
     Indication: PRODUCT USED FOR UNKNOWN INDICATION
     Dosage: 90 MG-1 PFS ONCE EVERY 8 WEEKS
     Route: 058

REACTIONS (9)
  - Faecal incontinence [Unknown]
  - Unevaluable event [Unknown]
  - Mucous stools [Unknown]
  - Pain [Unknown]
  - Drug dose omission [Not Recovered/Not Resolved]
  - Condition aggravated [Unknown]
  - Therapeutic response decreased [Unknown]
  - Decreased appetite [Unknown]
  - Asthenia [Unknown]

NARRATIVE: CASE EVENT DATE: 20130913
